FAERS Safety Report 12642074 (Version 2)
Quarter: 2016Q3

REPORT INFORMATION
  Report Type: Report from Study
  Country: US (occurrence: US)
  Receive Date: 20160810
  Receipt Date: 20160913
  Transmission Date: 20161109
  Serious: Yes (Death)
  Sender: FDA-Public Use
  Company Number: US-JNJFOC-20160804157

PATIENT
  Age: 82 Year
  Sex: Female

DRUGS (2)
  1. IMBRUVICA [Suspect]
     Active Substance: IBRUTINIB
     Indication: THROMBOCYTOPENIA
     Route: 048
     Dates: start: 201608
  2. IMBRUVICA [Suspect]
     Active Substance: IBRUTINIB
     Indication: IRON DEFICIENCY ANAEMIA
     Route: 048
     Dates: start: 201608

REACTIONS (3)
  - Death [Fatal]
  - Off label use [Not Recovered/Not Resolved]
  - Product use issue [Not Recovered/Not Resolved]

NARRATIVE: CASE EVENT DATE: 201608
